FAERS Safety Report 5956812-6 (Version None)
Quarter: 2008Q4

REPORT INFORMATION
  Report Type: 
  Country: None (occurrence: None)
  Receive Date: 20081106
  Receipt Date: 20080801
  Transmission Date: 20090506
  Serious: Yes (Life-Threatening)
  Sender: FDA-Public Use
  Company Number: ZYD-AE-08-105

PATIENT
  Age: 38 Year
  Sex: Female

DRUGS (3)
  1. BENZONATATE [Suspect]
     Indication: ASTHMA
     Dates: start: 20080101
  2. AMBIEN [Suspect]
     Indication: INSOMNIA
     Dosage: 10MG - PRN - PO
     Route: 048
     Dates: start: 20070101
  3. AMOXICILLIN [Concomitant]

REACTIONS (4)
  - CONVULSION [None]
  - DIARRHOEA [None]
  - DRUG INTERACTION [None]
  - VOMITING [None]
